FAERS Safety Report 7902978-8 (Version None)
Quarter: 2011Q4

REPORT INFORMATION
  Report Type: 
  Country: None (occurrence: None)
  Receive Date: 20111109
  Receipt Date: 20110413
  Transmission Date: 20120403
  Serious: No
  Sender: FDA-Public Use
  Company Number: US-BAYER-2011-033314

PATIENT
  Sex: Female

DRUGS (2)
  1. CLIMARA [Suspect]
  2. CLIMARA [Suspect]

REACTIONS (7)
  - LISTLESS [None]
  - SLEEP DISORDER [None]
  - ABNORMAL DREAMS [None]
  - SOMNOLENCE [None]
  - FATIGUE [None]
  - VISUAL IMPAIRMENT [None]
  - VISION BLURRED [None]
